FAERS Safety Report 23817145 (Version 1)
Quarter: 2024Q2

REPORT INFORMATION
  Report Type: Spontaneous
  Country: US (occurrence: US)
  Receive Date: 20240505
  Receipt Date: 20240505
  Transmission Date: 20240716
  Serious: No
  Sender: FDA-Public Use
  Company Number: US-JNJFOC-20240509497

PATIENT
  Sex: Male

DRUGS (4)
  1. SPRAVATO [Suspect]
     Active Substance: ESKETAMINE
     Indication: Major depression
  2. XANAX [Concomitant]
     Active Substance: ALPRAZOLAM
  3. VRAYLAR [Concomitant]
     Active Substance: CARIPRAZINE
  4. CLONIDINE HYDROCHLORIDE [Concomitant]
     Active Substance: CLONIDINE HYDROCHLORIDE

REACTIONS (3)
  - Emotional disorder [Unknown]
  - Aggression [Unknown]
  - Drug ineffective [Unknown]
